FAERS Safety Report 10622843 (Version 1)
Quarter: 2014Q4

REPORT INFORMATION
  Report Type: Spontaneous
  Country: US (occurrence: US)
  Receive Date: 20141203
  Receipt Date: 20141203
  Transmission Date: 20150529
  Serious: No
  Sender: FDA-Public Use
  Company Number: US-BAYER-2014-178295

PATIENT
  Age: 40 Year
  Sex: Male
  Weight: 68 kg

DRUGS (3)
  1. ALBUTEROL. [Concomitant]
     Active Substance: ALBUTEROL
  2. ALEVE [Suspect]
     Active Substance: NAPROXEN SODIUM
     Dosage: UNK
     Route: 048
  3. ALEVE [Suspect]
     Active Substance: NAPROXEN SODIUM
     Dosage: 6 DF, UNK
     Dates: start: 20141130, end: 20141201

REACTIONS (3)
  - Wheezing [Recovered/Resolved]
  - Extra dose administered [None]
  - Medication error [None]

NARRATIVE: CASE EVENT DATE: 20141130
